FAERS Safety Report 25052919 (Version 1)
Quarter: 2025Q1

REPORT INFORMATION
  Report Type: Spontaneous
  Country: US (occurrence: US)
  Receive Date: 20250307
  Receipt Date: 20250307
  Transmission Date: 20250408
  Serious: No
  Sender: SANOFI AVENTIS
  Company Number: US-SA-2025SA062945

PATIENT
  Sex: Female
  Weight: 87.528 kg

DRUGS (13)
  1. DUPIXENT [Suspect]
     Active Substance: DUPILUMAB
     Indication: Dermatitis atopic
     Dosage: 300 MG QOW
     Route: 058
     Dates: start: 202402
  2. AMLODIPINE [Concomitant]
     Active Substance: AMLODIPINE BESYLATE
  3. OLMESARTAN [Concomitant]
     Active Substance: OLMESARTAN
  4. AMMONIUM LACTATE [Concomitant]
     Active Substance: AMMONIUM LACTATE
  5. CLOBETASOL [Concomitant]
     Active Substance: CLOBETASOL
  6. DESOXIMETASONE [Concomitant]
     Active Substance: DESOXIMETASONE
  7. FLONASE ALLERGY RELIEF [Concomitant]
     Active Substance: FLUTICASONE PROPIONATE
  8. METAMUCIL SUGAR FREE [Concomitant]
  9. VITAMINS [Concomitant]
     Active Substance: VITAMINS
     Dosage: QD
  10. TRAZODONE HCL [Concomitant]
     Active Substance: TRAZODONE HYDROCHLORIDE
  11. UREA [Concomitant]
     Active Substance: UREA
  12. VITAMIN D2 [Concomitant]
     Active Substance: ERGOCALCIFEROL
  13. VIVELLE-DOT [Concomitant]
     Active Substance: ESTRADIOL

REACTIONS (3)
  - Skin fissures [Recovering/Resolving]
  - Skin haemorrhage [Recovering/Resolving]
  - Discomfort [Recovering/Resolving]
